FAERS Safety Report 12673019 (Version 1)
Quarter: 2016Q3

REPORT INFORMATION
  Report Type: Spontaneous
  Country: US (occurrence: US)
  Receive Date: 20160822
  Receipt Date: 20160822
  Transmission Date: 20161109
  Serious: No
  Sender: FDA-Public Use
  Company Number: US-BAYER-2016-158979

PATIENT
  Age: 79 Year
  Sex: Female
  Weight: 81.63 kg

DRUGS (2)
  1. MIRALAX [Suspect]
     Active Substance: POLYETHYLENE GLYCOL 3350
     Indication: COLONOSCOPY
     Dosage: 1 DF, UNK
     Route: 048
     Dates: start: 20160815
  2. PREPARATION H [GLYCEROL,PETROLATUM,PHENYLEPHRINE HYDROCHLORIDE,SHA [Concomitant]

REACTIONS (2)
  - Circumstance or information capable of leading to medication error [None]
  - Product use issue [None]
